FAERS Safety Report 5181861-8 (Version None)
Quarter: 2006Q4

REPORT INFORMATION
  Report Type: 
  Country: None (occurrence: None)
  Receive Date: 20061220
  Receipt Date: 20060317
  Transmission Date: 20070319
  Serious: No
  Sender: FDA-Public Use
  Company Number: US-GLAXOSMITHKLINE-A0597962A

PATIENT
  Age: 28 Year
  Sex: Female

DRUGS (2)
  1. COMMIT [Suspect]
     Dates: start: 20060316, end: 20060316
  2. ZYBAN [Concomitant]

REACTIONS (2)
  - HYPERSENSITIVITY [None]
  - ORAL MUCOSAL BLISTERING [None]
